FAERS Safety Report 6010363-1 (Version None)
Quarter: 2008Q4

REPORT INFORMATION
  Report Type: 
  Country: None (occurrence: None)
  Receive Date: 20081218
  Receipt Date: 20081209
  Transmission Date: 20090506
  Serious: Yes (Death)
  Sender: FDA-Public Use
  Company Number: CA-ABBOTT-08P-028-0489321-00

PATIENT
  Sex: Female
  Weight: 31.78 kg

DRUGS (2)
  1. HUMIRA [Suspect]
     Indication: CROHN'S DISEASE
     Route: 058
     Dates: start: 20080922
  2. PREDNISONE TAB [Concomitant]
     Indication: DRUG USE FOR UNKNOWN INDICATION

REACTIONS (4)
  - DEATH [None]
  - HERPES ZOSTER [None]
  - LUNG ABSCESS [None]
  - LUNG INFILTRATION [None]
